FAERS Safety Report 9567554 (Version 1)
Quarter: 2013Q3

REPORT INFORMATION
  Report Type: Spontaneous
  Country: US (occurrence: US)
  Receive Date: 20130930
  Receipt Date: 20130930
  Transmission Date: 20140515
  Serious: No
  Sender: FDA-Public Use
  Company Number: US-AMGEN-USASP2013000774

PATIENT
  Sex: Female
  Weight: 84.81 kg

DRUGS (10)
  1. ENBREL [Suspect]
     Indication: PRODUCT USED FOR UNKNOWN INDICATION
     Dosage: 50 MG, QWK
     Route: 058
  2. SIMVASTATIN [Concomitant]
     Dosage: 10 MG, UNK
  3. FISH OIL [Concomitant]
     Dosage: UNK
  4. VITAMIN B12 [Concomitant]
     Dosage: 1000 MUG, ER
  5. VIT C+R/HIP [Concomitant]
     Dosage: UNK
  6. ACEROLA [Concomitant]
     Dosage: UNK
  7. POTASSIUM [Concomitant]
     Dosage: 95 MG, UNK
  8. CALCIUM CITRATE +D [Concomitant]
     Dosage: UNK
  9. VITAMIN D                          /00107901/ [Concomitant]
     Dosage: UNK
  10. GENTEAL                            /00445101/ [Concomitant]
     Dosage: UNK

REACTIONS (1)
  - Injection site erythema [Unknown]
